FAERS Safety Report 25341978 (Version 1)
Quarter: 2025Q2

REPORT INFORMATION
  Report Type: Spontaneous
  Country: US (occurrence: US)
  Receive Date: 20250521
  Receipt Date: 20250521
  Transmission Date: 20250717
  Serious: Yes (Hospitalization, Other)
  Sender: GLAND PHARMA LTD
  Company Number: US-GLANDPHARMA-US-2025GLNLIT01266

PATIENT
  Age: 21 Year
  Sex: Male

DRUGS (1)
  1. ALLOPURINOL [Suspect]
     Active Substance: ALLOPURINOL
     Indication: Gout
     Route: 065

REACTIONS (7)
  - Cholecystitis [Recovered/Resolved]
  - Liver injury [Recovered/Resolved]
  - Gallbladder oedema [Recovered/Resolved]
  - Toxicity to various agents [Recovered/Resolved]
  - Hepatitis acute [Recovered/Resolved]
  - Drug reaction with eosinophilia and systemic symptoms [Recovered/Resolved]
  - Rash erythematous [Recovered/Resolved]
